FAERS Safety Report 10717263 (Version 2)
Quarter: 2015Q2

REPORT INFORMATION
  Report Type: Spontaneous
  Country: US (occurrence: US)
  Receive Date: 20150116
  Receipt Date: 20150516
  Transmission Date: 20150821
  Serious: No
  Sender: FDA-Public Use
  Company Number: US-009507513-1501USA005459

PATIENT
  Age: 35 Year
  Sex: Female
  Weight: 57.14 kg

DRUGS (1)
  1. NEXPLANON [Suspect]
     Active Substance: ETONOGESTREL
     Indication: CONTRACEPTION
     Dosage: 68 MG/1 ROD EVERY 3 YEARS
     Route: 059
     Dates: start: 20140725, end: 20141217

REACTIONS (3)
  - Pruritus [Recovered/Resolved]
  - Contusion [Recovered/Resolved]
  - Rash [Recovered/Resolved]

NARRATIVE: CASE EVENT DATE: 20141128
